FAERS Safety Report 9714022 (Version 2)
Quarter: 2015Q3

REPORT INFORMATION
  Report Type: Spontaneous
  Country: US (occurrence: US)
  Receive Date: 20131126
  Receipt Date: 20150803
  Transmission Date: 20151125
  Serious: No
  Sender: FDA-Public Use
  Company Number: US-GILEAD-2008-0018590

PATIENT
  Age: 63 Year
  Sex: Female
  Weight: 86.18 kg

DRUGS (7)
  1. PRILOSEC [Concomitant]
     Active Substance: OMEPRAZOLE MAGNESIUM
  2. HYDROCHLOROTHIAZIDE. [Concomitant]
     Active Substance: HYDROCHLOROTHIAZIDE
  3. DIOVAN [Concomitant]
     Active Substance: VALSARTAN
  4. DILTIAZEM [Concomitant]
     Active Substance: DILTIAZEM
  5. PROBENECID. [Concomitant]
     Active Substance: PROBENECID
  6. LETAIRIS [Suspect]
     Active Substance: AMBRISENTAN
     Indication: PULMONARY ARTERIAL HYPERTENSION
     Route: 048
     Dates: start: 20071003
  7. COUMADIN [Concomitant]
     Active Substance: WARFARIN SODIUM

REACTIONS (1)
  - Nasal congestion [Not Recovered/Not Resolved]
